FAERS Safety Report 9077060 (Version 1)
Quarter: 2013Q1

REPORT INFORMATION
  Report Type: Report from Study
  Country: US (occurrence: US)
  Receive Date: 20130129
  Receipt Date: 20130129
  Transmission Date: 20140127
  Serious: No
  Sender: FDA-Public Use
  Company Number: US-ABBOTT-12P-163-0945812-00

PATIENT
  Age: 53 Year
  Sex: Female

DRUGS (7)
  1. HUMIRA 40 MG/0.8 ML PEN [Suspect]
     Indication: COLITIS ULCERATIVE
     Dates: start: 20120610
  2. LISINOPRIL [Concomitant]
     Indication: HYPERTENSION
     Dosage: 40MG DAILY
  3. AMLODIPINE [Concomitant]
     Indication: HYPERTENSION
     Dosage: 10MG DAILY
  4. FERROUS SULFATE [Concomitant]
     Indication: BLOOD IRON DECREASED
  5. METFORMIN [Concomitant]
     Indication: DIABETES MELLITUS
     Dosage: AT NIGHT
  6. GLIPIZIDE [Concomitant]
     Indication: DIABETES MELLITUS
     Dosage: 5MG DAILY
  7. CRESTOR [Concomitant]
     Indication: HYPERTENSION
     Dosage: 10MG DAILY

REACTIONS (1)
  - Injection site pain [Recovered/Resolved]
